FAERS Safety Report 14328889 (Version 3)
Quarter: 2021Q1

REPORT INFORMATION
  Report Type: Spontaneous
  Country: US (occurrence: US)
  Receive Date: 20171227
  Receipt Date: 20210208
  Transmission Date: 20210419
  Serious: No
  Sender: FDA-Public Use
  Company Number: US-PFIZER INC-2017546950

PATIENT
  Age: 58 Year
  Sex: Female
  Weight: 64 kg

DRUGS (2)
  1. XELJANZ XR [Suspect]
     Active Substance: TOFACITINIB CITRATE
     Indication: RHEUMATOID ARTHRITIS
     Dosage: 11 MG, DAILY
     Route: 048
     Dates: start: 2017, end: 2020
  2. XELJANZ XR [Suspect]
     Active Substance: TOFACITINIB CITRATE
     Dosage: 11 MG, DAILY
     Route: 048

REACTIONS (12)
  - Foot fracture [Unknown]
  - Headache [Unknown]
  - Insomnia [Unknown]
  - COVID-19 [Unknown]
  - Bone density decreased [Unknown]
  - Pain [Unknown]
  - Ageusia [Unknown]
  - Memory impairment [Unknown]
  - Tremor [Unknown]
  - Fatigue [Unknown]
  - Anosmia [Unknown]
  - Anxiety [Unknown]
